FAERS Safety Report 8319249-0 (Version None)
Quarter: 2012Q2

REPORT INFORMATION
  Report Type: 
  Country: None (occurrence: None)
  Receive Date: 20120427
  Receipt Date: 20120417
  Transmission Date: 20120825
  Serious: Yes (Hospitalization, Other)
  Sender: FDA-Public Use
  Company Number: US-ABBOTT-12P-163-0926661-00

PATIENT
  Sex: Female
  Weight: 45.4 kg

DRUGS (13)
  1. HUMIRA [Suspect]
     Indication: CROHN'S DISEASE
     Route: 058
     Dates: start: 20081001, end: 20090401
  2. HUMIRA [Suspect]
     Dosage: LOADING DOSE
     Dates: start: 20120410, end: 20120410
  3. HUMIRA [Suspect]
     Dosage: LOADING DOSE
     Dates: start: 20120412, end: 20120412
  4. PREDNISONE [Concomitant]
     Indication: CROHN'S DISEASE
     Dosage: TAPERING DOWN
     Dates: start: 20120301
  5. UNKNOWN ANTIBIOTICS [Concomitant]
     Indication: CROHN'S DISEASE
     Dosage: ONLY HAS TWO MORE DOSES
     Dates: start: 20120301
  6. ASCORBIC ACID [Concomitant]
     Indication: PRODUCT USED FOR UNKNOWN INDICATION
  7. PROTONIX [Concomitant]
     Indication: GASTRIC DISORDER
  8. VALTREX [Concomitant]
     Indication: HERPES VIRUS INFECTION
  9. GABAPENTIN [Concomitant]
     Indication: PRODUCT USED FOR UNKNOWN INDICATION
  10. UNKNOWN DIGESTIVE ENZYME [Concomitant]
     Indication: PRODUCT USED FOR UNKNOWN INDICATION
  11. HUMIRA [Suspect]
     Dosage: LOADING DOSE
     Dates: start: 20120411, end: 20120411
  12. HUMIRA [Suspect]
     Dosage: LOADING DOSE
     Dates: start: 20120414, end: 20120414
  13. HUMIRA [Suspect]
     Dosage: LOADING DOSE
     Dates: start: 20120413, end: 20120413

REACTIONS (15)
  - PAIN [None]
  - CROHN'S DISEASE [None]
  - NAUSEA [None]
  - MALAISE [None]
  - SINUSITIS [None]
  - INJECTION SITE SWELLING [None]
  - INJECTION SITE PAIN [None]
  - COUGH [None]
  - ANXIETY [None]
  - INJECTION SITE REACTION [None]
  - INTESTINAL OBSTRUCTION [None]
  - POSTOPERATIVE ADHESION [None]
  - COLD SWEAT [None]
  - FLUSHING [None]
  - INJECTION SITE HAEMATOMA [None]
